FAERS Safety Report 18610144 (Version 1)
Quarter: 2020Q4

REPORT INFORMATION
  Report Type: Spontaneous
  Country: BR (occurrence: BR)
  Receive Date: 20201214
  Receipt Date: 20201214
  Transmission Date: 20210114
  Serious: Yes (Other)
  Sender: FDA-Public Use
  Company Number: NVSC2020BR328873

PATIENT
  Sex: Female

DRUGS (1)
  1. ESTRADOT [Suspect]
     Active Substance: ESTRADIOL
     Indication: HORMONE REPLACEMENT THERAPY
     Dosage: 1 DF
     Route: 065

REACTIONS (6)
  - Product availability issue [Unknown]
  - Product dose omission issue [Unknown]
  - Hormone level abnormal [Unknown]
  - Blood pressure increased [Unknown]
  - Arrhythmia [Unknown]
  - Malaise [Unknown]
